FAERS Safety Report 24933536 (Version 1)
Quarter: 2025Q1

REPORT INFORMATION
  Report Type: Spontaneous
  Country: AT (occurrence: AT)
  Receive Date: 20250206
  Receipt Date: 20250206
  Transmission Date: 20250409
  Serious: Yes (Other)
  Sender: EXELIXIS
  Company Number: AT-IPSEN Group, Research and Development-2023-26773

PATIENT
  Age: 41 Year
  Sex: Female

DRUGS (6)
  1. CABOMETYX [Suspect]
     Active Substance: CABOZANTINIB S-MALATE
     Indication: Renal cell carcinoma
     Dosage: 40 MG, QD
     Route: 065
     Dates: start: 20230314
  2. CABOMETYX [Suspect]
     Active Substance: CABOZANTINIB S-MALATE
     Dosage: 60 MG, QD
     Route: 065
  3. ELIQUIS [Concomitant]
     Active Substance: APIXABAN
  4. LENVATINIB [Concomitant]
     Active Substance: LENVATINIB
     Dosage: 18 MG, QD
     Dates: start: 20230818
  5. LENVATINIB [Concomitant]
     Active Substance: LENVATINIB
     Dosage: 14 MG, QD
     Dates: start: 20231109
  6. EVEROLIMUS [Concomitant]
     Active Substance: EVEROLIMUS
     Dosage: 5 MG, QD
     Dates: start: 20230818

REACTIONS (6)
  - Malignant neoplasm progression [Unknown]
  - Pyrexia [Unknown]
  - Vaginal haemorrhage [Unknown]
  - Oral pain [Unknown]
  - Cough [Unknown]
  - Diarrhoea [Unknown]

NARRATIVE: CASE EVENT DATE: 20230328
